FAERS Safety Report 6679511-4 (Version None)
Quarter: 2010Q2

REPORT INFORMATION
  Report Type: 
  Country: None (occurrence: None)
  Receive Date: 20100408
  Receipt Date: 20090807
  Transmission Date: 20101027
  Serious: No
  Sender: FDA-Public Use
  Company Number: 2009-00516

PATIENT
  Age: 72 Year
  Sex: Female
  Weight: 73.9363 kg

DRUGS (11)
  1. ZICAM COLD REMEDY ORAL MIST [Suspect]
     Dosage: SPORADIC
     Dates: start: 20090101, end: 20090101
  2. LISINOPRIL [Concomitant]
  3. HYDROCHLOROTHIAZIDE [Concomitant]
  4. CELEXA [Concomitant]
  5. SIMVASTATIN [Concomitant]
  6. OXYBUTYNIN [Concomitant]
  7. PRILOSEC [Concomitant]
  8. ASPIRIN [Concomitant]
  9. MULTIVITAMIN PACK [Concomitant]
  10. CARVEDILLA (COREG) [Concomitant]
  11. OSTEOBIFLEX [Concomitant]

REACTIONS (1)
  - AGEUSIA [None]
